FAERS Safety Report 18066013 (Version 1)
Quarter: 2020Q3

REPORT INFORMATION
  Report Type: Spontaneous
  Country: BR (occurrence: BR)
  Receive Date: 20200724
  Receipt Date: 20200724
  Transmission Date: 20201103
  Serious: Yes (Other)
  Sender: FDA-Public Use
  Company Number: BR-009507513-2007BRA008839

PATIENT
  Age: 74 Year
  Sex: Male

DRUGS (3)
  1. PEMBROLIZUMAB. [Suspect]
     Active Substance: PEMBROLIZUMAB
     Indication: LUNG NEOPLASM MALIGNANT
     Dosage: 200 MG EVERY 3 WEEKS
     Dates: start: 201908, end: 202003
  2. PEMBROLIZUMAB. [Suspect]
     Active Substance: PEMBROLIZUMAB
     Dosage: 400 MG EVERY 6 WEEKS
     Dates: start: 202003
  3. PEMBROLIZUMAB. [Suspect]
     Active Substance: PEMBROLIZUMAB
     Dosage: 400 MG EVERY 6 WEEKS
     Dates: start: 2020

REACTIONS (2)
  - Adrenal insufficiency [Unknown]
  - Adrenalitis [Unknown]

NARRATIVE: CASE EVENT DATE: 2020
